FAERS Safety Report 21243077 (Version 1)
Quarter: 2022Q3

REPORT INFORMATION
  Report Type: Spontaneous
  Country: US (occurrence: US)
  Receive Date: 20220823
  Receipt Date: 20220823
  Transmission Date: 20221027
  Serious: Yes (Other)
  Sender: FDA-Public Use
  Company Number: US-GLAXOSMITHKLINE-US2020AMR146000

PATIENT

DRUGS (10)
  1. ZEJULA [Suspect]
     Active Substance: NIRAPARIB
     Indication: Ovarian cancer
     Dosage: 300 MG, QD
     Route: 048
     Dates: start: 20200704
  2. ZEJULA [Suspect]
     Active Substance: NIRAPARIB
     Dosage: 200 MG, QD
     Route: 065
  3. ZEJULA [Suspect]
     Active Substance: NIRAPARIB
     Dosage: 200 MG, QD
     Route: 065
  4. ZEJULA [Suspect]
     Active Substance: NIRAPARIB
     Dosage: 200 MG, QD
  5. ZEJULA [Suspect]
     Active Substance: NIRAPARIB
     Dosage: 200 MG, QD
     Route: 048
  6. ZEJULA [Suspect]
     Active Substance: NIRAPARIB
     Dosage: 200 MG, QD
     Route: 048
  7. ZEJULA [Suspect]
     Active Substance: NIRAPARIB
     Dosage: 200 MG, QD
     Route: 048
     Dates: start: 20211115
  8. ZEJULA [Suspect]
     Active Substance: NIRAPARIB
     Dosage: 200 MG, QD
     Route: 048
  9. ZEJULA [Suspect]
     Active Substance: NIRAPARIB
     Dosage: 200 MG, QD
  10. ZEJULA [Suspect]
     Active Substance: NIRAPARIB
     Dosage: 200 MG, QD

REACTIONS (17)
  - Recurrent cancer [Unknown]
  - Insomnia [Recovered/Resolved]
  - Dyspnoea [Unknown]
  - Coagulopathy [Unknown]
  - Back pain [Unknown]
  - Bone pain [Unknown]
  - Illness [Unknown]
  - Nausea [Recovering/Resolving]
  - Influenza [Unknown]
  - Vomiting [Unknown]
  - Rash papular [Unknown]
  - Platelet count decreased [Unknown]
  - Tumour marker increased [Unknown]
  - COVID-19 [Unknown]
  - Lymphadenopathy [Unknown]
  - Carbohydrate antigen 125 increased [Not Recovered/Not Resolved]
  - Product dose omission issue [Unknown]
